FAERS Safety Report 8473612-6 (Version None)
Quarter: 2012Q2

REPORT INFORMATION
  Report Type: 
  Country: None (occurrence: None)
  Receive Date: 20120628
  Receipt Date: 20110809
  Transmission Date: 20120825
  Serious: Yes (Other)
  Sender: FDA-Public Use
  Company Number: US-MYLANLABS-2011S1014041

PATIENT
  Age: 39 Year
  Sex: Male
  Weight: 97.52 kg

DRUGS (4)
  1. CLOZAPINE [Suspect]
     Indication: SCHIZOAFFECTIVE DISORDER
     Route: 048
     Dates: start: 20050101, end: 20110629
  2. OMEPRAZOLE [Concomitant]
  3. CLOZAPINE [Suspect]
     Route: 048
     Dates: start: 20050101, end: 20110629
  4. DEPAKOTE [Concomitant]

REACTIONS (2)
  - GRANULOCYTOPENIA [None]
  - LEUKOPENIA [None]
